FAERS Safety Report 5754015-1 (Version None)
Quarter: 2008Q2

REPORT INFORMATION
  Report Type: 
  Country: None (occurrence: None)
  Receive Date: 20080530
  Receipt Date: 20080519
  Transmission Date: 20081010
  Serious: Yes (Hospitalization, Other)
  Sender: FDA-Public Use
  Company Number: US-ROCHE-565707

PATIENT
  Age: 50 Year
  Sex: Male

DRUGS (6)
  1. PEGASYS [Suspect]
     Indication: HEPATITIS C
     Dosage: 24 WEEKS
     Route: 065
  2. RIBAVIRIN [Suspect]
     Indication: HEPATITIS C
     Route: 065
  3. RIBAVIRIN [Suspect]
     Route: 065
  4. CONSENSUS INTERFERON [Suspect]
     Indication: HEPATITIS C
     Route: 065
  5. NIFEDIPINE [Concomitant]
     Indication: HYPERTENSION
  6. TERAZOSIN HCL [Concomitant]

REACTIONS (3)
  - DIABETIC KETOACIDOSIS [None]
  - FATIGUE [None]
  - NO THERAPEUTIC RESPONSE [None]
